FAERS Safety Report 9493711 (Version 1)
Quarter: 2013Q3

REPORT INFORMATION
  Report Type: Spontaneous
  Country: US (occurrence: US)
  Receive Date: 20130902
  Receipt Date: 20130902
  Transmission Date: 20140515
  Serious: Yes (Other)
  Sender: FDA-Public Use
  Company Number: US-PFIZER INC-2013251429

PATIENT
  Sex: Female

DRUGS (1)
  1. PREMPRO [Suspect]
     Dosage: 0.3/ 1.5MG ONCE
     Dates: start: 20130824, end: 20130824

REACTIONS (3)
  - Swelling face [Unknown]
  - Local swelling [Unknown]
  - Swollen tongue [Unknown]
